FAERS Safety Report 10579376 (Version 1)
Quarter: 2014Q4

REPORT INFORMATION
  Report Type: Spontaneous
  Country: US (occurrence: US)
  Receive Date: 20141112
  Receipt Date: 20141112
  Transmission Date: 20150529
  Serious: Yes (Hospitalization, Other)
  Sender: FDA-Public Use
  Company Number: US-ABBVIE-14P-163-1303976-00

PATIENT
  Age: 50 Year
  Sex: Male

DRUGS (2)
  1. DEPO-TESTOSTERONE [Suspect]
     Active Substance: TESTOSTERONE CYPIONATE
     Indication: BLOOD TESTOSTERONE DECREASED
     Route: 030
     Dates: end: 20081119
  2. ANDROGEL [Suspect]
     Active Substance: TESTOSTERONE
     Indication: BLOOD TESTOSTERONE DECREASED
     Route: 062
     Dates: start: 2004, end: 20060924

REACTIONS (9)
  - Social problem [Unknown]
  - Pain [Unknown]
  - Myocardial infarction [Unknown]
  - Anxiety [Unknown]
  - Cardiovascular disorder [Unknown]
  - Economic problem [Unknown]
  - Fear [Unknown]
  - Myocardial infarction [Unknown]
  - Anhedonia [Unknown]

NARRATIVE: CASE EVENT DATE: 20060924
